FAERS Safety Report 15747331 (Version 1)
Quarter: 2018Q4

REPORT INFORMATION
  Report Type: Spontaneous
  Country: US (occurrence: US)
  Receive Date: 20181220
  Receipt Date: 20181220
  Transmission Date: 20190205
  Serious: No
  Sender: FDA-Public Use
  Company Number: US-AVADEL SPECIALTY PHARMACEUTICALS, LLC-2018AVA00355

PATIENT
  Sex: Male

DRUGS (1)
  1. NOCTIVA [Suspect]
     Active Substance: DESMOPRESSIN ACETATE
     Route: 045

REACTIONS (2)
  - Product administration error [Unknown]
  - Nasal discomfort [Unknown]
